FAERS Safety Report 17745749 (Version 1)
Quarter: 2020Q2

REPORT INFORMATION
  Report Type: Report from Study
  Country: FR (occurrence: FR)
  Receive Date: 20200505
  Receipt Date: 20200505
  Transmission Date: 20200714
  Serious: Yes (Hospitalization, Other)
  Sender: FDA-Public Use
  Company Number: FR-PFIZER INC-FX1A-201-FRA-04/08

PATIENT
  Age: 72 Year
  Sex: Female

DRUGS (10)
  1. CALCITE D [Concomitant]
     Active Substance: CALCIUM CARBONATE
     Indication: OSTEOPOROSIS
     Dosage: 1 IN 1 DAY
     Route: 048
     Dates: start: 20080430
  2. EFFEXOR [Concomitant]
     Active Substance: VENLAFAXINE HYDROCHLORIDE
     Indication: ANXIETY
     Dosage: 37.5 MG, DAILY
     Route: 048
     Dates: start: 20080430
  3. OGAST [Concomitant]
     Active Substance: LANSOPRAZOLE
     Indication: ABDOMINAL PAIN UPPER
     Dosage: 1 DF, 1X/DAY
     Route: 048
     Dates: start: 20080430
  4. LEXOMIL [Concomitant]
     Active Substance: BROMAZEPAM
     Indication: ANXIETY
     Dosage: QUARTER A TABLET DAILY
     Route: 048
     Dates: start: 20060901
  5. ACTONEL [Concomitant]
     Active Substance: RISEDRONATE SODIUM
     Indication: OSTEOPOROSIS
     Dosage: 1 IN 1 DAY
     Route: 048
     Dates: start: 200701
  6. COVERSYL [Concomitant]
     Active Substance: PERINDOPRIL
     Indication: HYPERTENSION
     Dosage: 2 MG, DAILY
     Route: 048
     Dates: start: 20080430
  7. TAFAMIDIS MEGLUMINE [Suspect]
     Active Substance: TAFAMIDIS MEGLUMINE
     Indication: HEREDITARY NEUROPATHIC AMYLOIDOSIS
     Dosage: 1 IN 1 DAY
     Route: 048
     Dates: start: 20080716
  8. PLAVIX [Concomitant]
     Active Substance: CLOPIDOGREL BISULFATE
     Indication: CORONARY ARTERIAL STENT INSERTION
     Dosage: 75 MG, DAILY
     Route: 048
     Dates: start: 20080430
  9. TAHOR [Concomitant]
     Active Substance: ATORVASTATIN CALCIUM
     Indication: CORONARY ARTERIAL STENT INSERTION
     Dosage: UNK
     Route: 048
     Dates: start: 20080430
  10. KREDEX [Concomitant]
     Active Substance: CARVEDILOL
     Indication: OEDEMA PERIPHERAL
     Dosage: 12.5 MG, 2X/DAY
     Route: 048
     Dates: start: 20080628

REACTIONS (1)
  - Ankle fracture [Recovered/Resolved]

NARRATIVE: CASE EVENT DATE: 20080915
